FAERS Safety Report 6618636-6 (Version None)
Quarter: 2010Q1

REPORT INFORMATION
  Report Type: 
  Country: None (occurrence: None)
  Receive Date: 20100308
  Receipt Date: 20100301
  Transmission Date: 20100710
  Serious: Yes (Hospitalization)
  Sender: FDA-Public Use
  Company Number: US-ROCHE-687918

PATIENT
  Sex: Male

DRUGS (11)
  1. PEG-INTERFERON ALFA 2A (RO 25-8310) [Suspect]
     Route: 058
     Dates: start: 20091105, end: 20100121
  2. PEG-INTERFERON ALFA 2A (RO 25-8310) [Suspect]
     Route: 058
     Dates: start: 20100128
  3. PEG-INTERFERON ALFA 2A (RO 25-8310) [Suspect]
     Route: 058
     Dates: start: 20100204
  4. RIBAVIRIN [Suspect]
     Route: 048
     Dates: start: 20091105, end: 20100124
  5. RIBAVIRIN [Suspect]
     Dosage: DOSAGE REDUCED
     Route: 048
     Dates: start: 20100125, end: 20100203
  6. RIBAVIRIN [Suspect]
     Route: 048
     Dates: start: 20100204
  7. ELTROMBOPAG [Suspect]
     Indication: THROMBOCYTOPENIA
     Route: 048
     Dates: start: 20091106, end: 20091119
  8. ELTROMBOPAG [Suspect]
     Dosage: DOSAGE INCREASED
     Route: 048
     Dates: start: 20091120, end: 20091203
  9. ELTROMBOPAG [Suspect]
     Dosage: DOSAGE INCREASED
     Route: 048
     Dates: start: 20091204, end: 20091214
  10. ELTROMBOPAG [Suspect]
     Dosage: DOSAGE INCREASED
     Route: 048
     Dates: start: 20091215
  11. BLINDED ELTROMBOPAG [Suspect]
     Indication: THROMBOCYTOPENIA
     Dosage: DOSE BLINDED
     Route: 048
     Dates: start: 20091022, end: 20091105

REACTIONS (3)
  - FEBRILE NEUTROPENIA [None]
  - OROPHARYNGEAL PAIN [None]
  - PANCYTOPENIA [None]
